FAERS Safety Report 20361789 (Version 2)
Quarter: 2022Q2

REPORT INFORMATION
  Report Type: Report from Study
  Country: DE (occurrence: DE)
  Receive Date: 20220121
  Receipt Date: 20220505
  Transmission Date: 20220721
  Serious: Yes (Other)
  Sender: FDA-Public Use
  Company Number: DE-PFIZER INC-202200051277

PATIENT
  Age: 9 Day

DRUGS (3)
  1. VORICONAZOLE [Suspect]
     Active Substance: VORICONAZOLE
     Indication: Aspergillus infection
     Dosage: 6 MG/KG, DAILY (Q12, LOADING DOSE,D1)
  2. VORICONAZOLE [Suspect]
     Active Substance: VORICONAZOLE
     Dosage: 4 MG/KG, DAILY (Q12, FROM DAY 2)
  3. VORICONAZOLE [Suspect]
     Active Substance: VORICONAZOLE
     Dosage: 5 MG/KG, DAILY (Q12)

REACTIONS (1)
  - Hepatotoxicity [Recovered/Resolved]
